FAERS Safety Report 13921980 (Version 1)
Quarter: 2017Q3

REPORT INFORMATION
  Report Type: Spontaneous
  Country: CA (occurrence: CA)
  Receive Date: 20170830
  Receipt Date: 20170830
  Transmission Date: 20171127
  Serious: Yes (Hospitalization)
  Sender: FDA-Public Use
  Company Number: CA-UNICHEM LABORATORIES LIMITED-UCM201708-000219

PATIENT
  Age: 49 Year
  Sex: Female

DRUGS (4)
  1. AMLODIPINE [Suspect]
     Active Substance: AMLODIPINE BESYLATE
  2. RISPERIDONE. [Suspect]
     Active Substance: RISPERIDONE
  3. FUROSEMIDE. [Concomitant]
     Active Substance: FUROSEMIDE
  4. ESCITALOPRAM [Suspect]
     Active Substance: ESCITALOPRAM OXALATE

REACTIONS (11)
  - Tachycardia [Recovered/Resolved]
  - Hypoglycaemia [Recovered/Resolved]
  - Hypotension [Recovered/Resolved]
  - Anuria [Recovered/Resolved]
  - Visual impairment [Not Recovered/Not Resolved]
  - Pulmonary oedema [Recovered/Resolved]
  - Intentional overdose [Recovered/Resolved]
  - Hypokalaemia [Recovered/Resolved]
  - Optic atrophy [Not Recovered/Not Resolved]
  - Circulatory collapse [Recovered/Resolved]
  - Altered state of consciousness [Recovered/Resolved]
